FAERS Safety Report 5514132-8 (Version None)
Quarter: 2007Q4

REPORT INFORMATION
  Report Type: 
  Country: None (occurrence: None)
  Receive Date: 20071113
  Receipt Date: 20071108
  Transmission Date: 20080405
  Serious: Yes (Hospitalization)
  Sender: FDA-Public Use
  Company Number: JP-BRISTOL-MYERS SQUIBB COMPANY-13978796

PATIENT
  Age: 45 Year
  Sex: Male

DRUGS (3)
  1. BRIPLATIN INJ [Suspect]
     Indication: PANCREATIC CARCINOMA
     Route: 041
     Dates: start: 20030722, end: 20030722
  2. FLUOROURACIL [Suspect]
  3. GEMZAR [Concomitant]
     Route: 042
     Dates: start: 20030722, end: 20030729

REACTIONS (6)
  - FEBRILE NEUTROPENIA [None]
  - MALAISE [None]
  - NEUTROPENIA [None]
  - RASH [None]
  - STOMATITIS [None]
  - THROMBOCYTOPENIA [None]
